FAERS Safety Report 6241589-X (Version None)
Quarter: 2009Q2

REPORT INFORMATION
  Report Type: 
  Country: None (occurrence: None)
  Receive Date: 20090623
  Receipt Date: 20050124
  Transmission Date: 20091009
  Serious: Yes (Death, Hospitalization)
  Sender: FDA-Public Use
  Company Number: ES-ROCHE-383156

PATIENT
  Sex: Female
  Weight: 54 kg

DRUGS (34)
  1. DACLIZUMAB [Suspect]
     Route: 042
     Dates: start: 20041008
  2. DACLIZUMAB [Suspect]
     Route: 042
     Dates: start: 20041022
  3. MYCOPHENOLATE MOFETIL [Suspect]
     Route: 048
     Dates: start: 20040921
  4. MYCOPHENOLATE MOFETIL [Suspect]
     Route: 048
     Dates: start: 20040922
  5. MYCOPHENOLATE MOFETIL [Suspect]
     Route: 048
     Dates: start: 20040923
  6. MYCOPHENOLATE MOFETIL [Suspect]
     Route: 048
     Dates: start: 20041222
  7. MYCOPHENOLATE MOFETIL [Suspect]
     Route: 048
     Dates: start: 20041222
  8. CYCLOSPORINE [Suspect]
     Dosage: DRUG REPORTED: CYCLOSPORINE
     Route: 048
     Dates: start: 20040921
  9. CYCLOSPORINE [Suspect]
     Route: 048
     Dates: start: 20041002, end: 20041022
  10. CYCLOSPORINE [Suspect]
     Dosage: DRUG REPORTED: CYCLOSPORINE
     Route: 048
     Dates: start: 20040923
  11. PREDNISONE [Suspect]
     Route: 048
     Dates: start: 20040923
  12. INSULINE [Concomitant]
     Route: 058
     Dates: start: 20040921
  13. INSULINE [Concomitant]
     Route: 058
     Dates: start: 20041021
  14. INSULINE [Concomitant]
     Route: 058
     Dates: start: 20041028, end: 20050104
  15. INSULINE [Concomitant]
     Route: 058
     Dates: start: 20050108, end: 20050110
  16. RANUBER [Concomitant]
     Route: 048
     Dates: start: 20040922, end: 20050117
  17. FUROSEMIDE [Concomitant]
     Route: 048
     Dates: start: 20040930, end: 20050117
  18. ARANESP [Concomitant]
     Route: 058
     Dates: start: 20040929, end: 20050117
  19. OMEPRAZOLE [Concomitant]
     Dates: start: 20041221, end: 20050117
  20. SODIUM HYDROGEN CARBONATE [Concomitant]
     Dates: start: 20041228, end: 20050103
  21. AZACTAM [Concomitant]
     Dosage: FORM: VIAL
     Route: 042
     Dates: start: 20040921, end: 20040923
  22. AZACTAM [Concomitant]
     Route: 042
     Dates: start: 20041007, end: 20041008
  23. AZACTAM [Concomitant]
     Route: 042
     Dates: start: 20041106, end: 20041112
  24. CEFUROXIME [Concomitant]
     Dosage: FORM: VIAL
     Route: 042
     Dates: start: 20041008
  25. COTRIMOXAZOLE [Concomitant]
     Route: 048
     Dates: start: 20041018
  26. COTRIMOXAZOLE [Concomitant]
     Route: 048
     Dates: start: 20050105, end: 20050107
  27. DARBEPOETIN ALFA [Concomitant]
     Dosage: DRUG REPORTED: DARBEPOETINE
     Route: 042
     Dates: start: 20040930
  28. INSULIN NPH [Concomitant]
     Route: 058
     Dates: start: 20040924
  29. INSULIN NPH [Concomitant]
     Route: 058
     Dates: start: 20040925
  30. INSULIN NPH [Concomitant]
     Route: 058
     Dates: start: 20040928, end: 20050106
  31. INSULIN NPH [Concomitant]
     Route: 058
     Dates: end: 20050107
  32. PREDNISONE [Suspect]
     Dosage: FORM: VIAL
     Route: 042
     Dates: start: 20040921, end: 20040922
  33. TEICOPLANINE [Concomitant]
     Dosage: ROUTE: IM, FORM: VIAL
     Route: 050
     Dates: start: 20041111, end: 20041119
  34. VANCOMYCIN [Concomitant]
     Dosage: FORM: VIAL, DRUG REPORTED: VANCOMICINE
     Route: 042
     Dates: start: 20040921, end: 20040922

REACTIONS (3)
  - COLITIS ISCHAEMIC [None]
  - SEPTIC SHOCK [None]
  - UROSEPSIS [None]
